FAERS Safety Report 6901753-0 (Version None)
Quarter: 2010Q3

REPORT INFORMATION
  Report Type: 
  Country: None (occurrence: None)
  Receive Date: 20100803
  Receipt Date: 20080303
  Transmission Date: 20110219
  Serious: No
  Sender: FDA-Public Use
  Company Number: US-PFIZER INC-2008016672

PATIENT
  Sex: Female
  Weight: 95.4 kg

DRUGS (5)
  1. LYRICA [Suspect]
     Indication: NERVE INJURY
     Dates: start: 20060701
  2. ADVAIR DISKUS 100/50 [Concomitant]
  3. ALBUTEROL [Concomitant]
  4. COREG [Concomitant]
  5. SPIRONOLACTONE [Concomitant]

REACTIONS (1)
  - DRUG INEFFECTIVE [None]
